FAERS Safety Report 21133806 (Version 1)
Quarter: 2022Q3

REPORT INFORMATION
  Report Type: Spontaneous
  Country: FR (occurrence: FR)
  Receive Date: 20220726
  Receipt Date: 20220726
  Transmission Date: 20221026
  Serious: Yes (Hospitalization)
  Sender: FDA-Public Use
  Company Number: None

PATIENT
  Age: 13 Year
  Sex: Male

DRUGS (2)
  1. METHOTREXATE [Interacting]
     Active Substance: METHOTREXATE
     Indication: Acute lymphocytic leukaemia
     Dosage: 5900 MILLIGRAM
     Route: 042
     Dates: start: 20220531, end: 20220531
  2. IMATINIB [Interacting]
     Active Substance: IMATINIB
     Indication: Acute lymphocytic leukaemia
     Dosage: 410 MILLIGRAM, QD
     Route: 048
     Dates: start: 20220211

REACTIONS (2)
  - Drug interaction [Recovered/Resolved]
  - Incorrect disposal of product [Recovered/Resolved]

NARRATIVE: CASE EVENT DATE: 20220531
